FAERS Safety Report 21093518 (Version 2)
Quarter: 2022Q3

REPORT INFORMATION
  Report Type: Report from Study
  Country: ES (occurrence: ES)
  Receive Date: 20220718
  Receipt Date: 20220818
  Transmission Date: 20221026
  Serious: Yes (Other)
  Sender: FDA-Public Use
  Company Number: ES-BRISTOL-MYERS SQUIBB COMPANY-2022-069830

PATIENT
  Age: 61 Year
  Sex: Male
  Weight: 64.5 kg

DRUGS (8)
  1. LENALIDOMIDE [Suspect]
     Active Substance: LENALIDOMIDE
     Indication: Plasma cell myeloma
     Dosage: 21 DAYS PER CYCLE.
     Route: 048
     Dates: start: 20170607, end: 20210527
  2. CARFILZOMIB [Suspect]
     Active Substance: CARFILZOMIB
     Indication: Plasma cell myeloma
     Dosage: 6 DAYS PER CYCLE.
     Route: 042
     Dates: start: 20170607, end: 20170821
  3. DEXAMETHASONE [Suspect]
     Active Substance: DEXAMETHASONE
     Indication: Plasma cell myeloma
     Dosage: 4 DAYS PER CYCLE.
     Route: 048
     Dates: start: 20170607, end: 20210528
  4. TAMSULOSIN HYDROCHLORIDE [Concomitant]
     Active Substance: TAMSULOSIN HYDROCHLORIDE
     Indication: Benign prostatic hyperplasia
     Route: 048
     Dates: start: 20200408
  5. SERENOA REPENS WHOLE [Concomitant]
     Active Substance: SERENOA REPENS WHOLE
     Indication: Benign prostatic hyperplasia
     Route: 048
     Dates: start: 20201230
  6. OMEPRAZOLE [Concomitant]
     Active Substance: OMEPRAZOLE
     Indication: Prophylaxis
     Route: 048
     Dates: start: 20220111
  7. ALPRAZOLAM [Concomitant]
     Active Substance: ALPRAZOLAM
     Indication: Anxiety
     Route: 048
     Dates: start: 20200404
  8. EBASTINE [Concomitant]
     Active Substance: EBASTINE
     Indication: Allergy prophylaxis
     Route: 048
     Dates: start: 20220520

REACTIONS (1)
  - Urethral cancer [Recovered/Resolved]

NARRATIVE: CASE EVENT DATE: 20220607
